FAERS Safety Report 20748848 (Version 1)
Quarter: 2022Q2

REPORT INFORMATION
  Report Type: Report from Study
  Country: JP (occurrence: JP)
  Receive Date: 20220426
  Receipt Date: 20220426
  Transmission Date: 20220721
  Serious: Yes (Hospitalization)
  Sender: FDA-Public Use
  Company Number: JP-ORPHANEU-2020001139

PATIENT

DRUGS (19)
  1. CARBAGLU [Suspect]
     Active Substance: CARGLUMIC ACID
     Indication: Hyperammonaemia
     Dosage: 100 MILLIGRAM, BID
     Route: 048
     Dates: start: 20190717, end: 20190820
  2. CARBAGLU [Suspect]
     Active Substance: CARGLUMIC ACID
     Indication: Methylmalonic aciduria
     Dosage: 150 MILLIGRAM, BID
     Route: 048
     Dates: start: 20190821, end: 20191014
  3. CARBAGLU [Suspect]
     Active Substance: CARGLUMIC ACID
     Dosage: 200 MILLIGRAM, BID
     Route: 048
     Dates: start: 20191015, end: 20191124
  4. CARBAGLU [Suspect]
     Active Substance: CARGLUMIC ACID
     Dosage: 250 MILLIGRAM, BID
     Route: 048
     Dates: start: 20191125, end: 20191223
  5. CARBAGLU [Suspect]
     Active Substance: CARGLUMIC ACID
     Dosage: 300 MILLIGRAM, BID
     Route: 048
     Dates: start: 20191224, end: 20200219
  6. CARBAGLU [Suspect]
     Active Substance: CARGLUMIC ACID
     Dosage: 500 MILLIGRAM BID
     Route: 048
     Dates: start: 20200220, end: 20201105
  7. CARBAGLU [Suspect]
     Active Substance: CARGLUMIC ACID
     Dosage: 600 MILLIGRAM, BID
     Route: 048
     Dates: start: 20201106
  8. HYCOBAL [COBAMAMIDE] [Concomitant]
     Indication: Product used for unknown indication
     Dosage: 1000 MICROGRAM, QD
     Route: 048
     Dates: start: 20190629
  9. BIOTIN [Concomitant]
     Active Substance: BIOTIN
     Indication: Product used for unknown indication
     Dosage: 0.5 MILLIGRAM, QD
     Route: 048
     Dates: start: 20190702
  10. LACTULOSE [Concomitant]
     Active Substance: LACTULOSE
     Indication: Product used for unknown indication
     Dosage: 2 MILLILITER, QD
     Route: 048
     Dates: start: 20190719, end: 20210824
  11. LACTULOSE [Concomitant]
     Active Substance: LACTULOSE
     Dosage: 1 MILLILITER, QD
     Route: 048
     Dates: start: 20210825
  12. LEVOCARNITINE [Concomitant]
     Active Substance: LEVOCARNITINE
     Indication: Product used for unknown indication
     Dosage: 12 MILLILITER, QD
     Route: 048
     Dates: start: 20200717, end: 20200802
  13. LEVOCARNITINE [Concomitant]
     Active Substance: LEVOCARNITINE
     Dosage: 13 MILLILITER, QD
     Route: 048
     Dates: start: 20200803, end: 20201001
  14. LEVOCARNITINE [Concomitant]
     Active Substance: LEVOCARNITINE
     Dosage: 14 MILLILITER, QD
     Route: 048
     Dates: start: 20201002, end: 20201213
  15. LEVOCARNITINE [Concomitant]
     Active Substance: LEVOCARNITINE
     Dosage: 16 MILLILITER, QD
     Route: 048
     Dates: start: 20201214, end: 20210307
  16. LEVOCARNITINE [Concomitant]
     Active Substance: LEVOCARNITINE
     Dosage: 20 MILLILITER, QD
     Route: 048
     Dates: start: 20210308, end: 20210606
  17. LEVOCARNITINE [Concomitant]
     Active Substance: LEVOCARNITINE
     Dosage: 22 MILLILITER, QD
     Route: 048
     Dates: start: 20210607, end: 20211010
  18. LEVOCARNITINE [Concomitant]
     Active Substance: LEVOCARNITINE
     Dosage: 26 MILLILITER, QD
     Route: 048
     Dates: start: 20211011, end: 20211206
  19. LEVOCARNITINE [Concomitant]
     Active Substance: LEVOCARNITINE
     Dosage: 30 MILLILITER, QD
     Route: 048
     Dates: start: 20211207

REACTIONS (12)
  - Cough [Recovered/Resolved]
  - Cough [Recovered/Resolved]
  - Rhinorrhoea [Recovered/Resolved]
  - Otitis media [Unknown]
  - Vomiting [Recovered/Resolved]
  - Pyrexia [Recovered/Resolved]
  - Pyrexia [Recovered/Resolved]
  - Pyrexia [Recovered/Resolved]
  - Sputum retention [Recovered/Resolved]
  - Nasal congestion [Unknown]
  - Cough [Recovered/Resolved]
  - Vomiting [Recovered/Resolved]

NARRATIVE: CASE EVENT DATE: 20200308
